FAERS Safety Report 9444484 (Version 1)
Quarter: 2013Q3

REPORT INFORMATION
  Report Type: Spontaneous
  Country: US (occurrence: None)
  Receive Date: 20130806
  Receipt Date: 20130806
  Transmission Date: 20140515
  Serious: Yes (Hospitalization)
  Sender: FDA-Public Use
  Company Number: None

PATIENT
  Age: 64 Year
  Sex: Male
  Weight: 85.28 kg

DRUGS (1)
  1. BENICAR [Suspect]
     Indication: HYPERTENSION
     Dosage: ONE QD ORAL
     Route: 048

REACTIONS (5)
  - Diarrhoea [None]
  - Dehydration [None]
  - Hypotension [None]
  - Weight decreased [None]
  - Colitis microscopic [None]
